FAERS Safety Report 8442536 (Version 2)
Quarter: 2012Q4

REPORT INFORMATION
  Report Type: 
  Country: US (occurrence: None)
  Receive Date: 20120104
  Receipt Date: 20120508
  Transmission Date: 20130627
  Serious: No
  Sender: FDA-Public Use
  Company Number: 2011HGS-002799

PATIENT
  Age: 40 Year
  Sex: Female
  Weight: 81.65 kg

DRUGS (15)
  1. BENLYSTA [Suspect]
     Indication: SYSTEMIC LUPUS ERYTHEMATOSUS
     Dosage: 1 IN 28 D, INTRAVENOUS DRIP
     Route: 041
     Dates: start: 20111103
  2. BENLYSTA [Suspect]
     Indication: SYSTEMIC LUPUS ERYTHEMATOSUS
     Dosage: 950 mg, 1 in 28 D, Intravenous drip
     Route: 041
     Dates: start: 20110817
  3. CELLCEPT [Concomitant]
  4. LYRICA [Concomitant]
  5. KLONOPIN [Concomitant]
  6. LISINOPRIL [Concomitant]
  7. CYMBALTA (ANTIDEPRESSANTS) (DULOXETINE HYDROCHLORIDE) [Concomitant]
  8. PREDNISONE [Concomitant]
  9. PLAQUENIL [Concomitant]
  10. SINGULAIR [Concomitant]
  11. PROTONIX [Concomitant]
  12. ULTRAM (TAMADOL HYDROCHLORIDE) [Concomitant]
  13. HYDROCODONE BITARTRATE [Concomitant]
  14. ADVAIR HFA [Concomitant]
  15. ALBUTEROL [Concomitant]

REACTIONS (3)
  - DIZZINESS [None]
  - FLUSHING [None]
  - HEADACHE [None]
